FAERS Safety Report 18034668 (Version 1)
Quarter: 2020Q3

REPORT INFORMATION
  Report Type: Spontaneous
  Country: EG (occurrence: EG)
  Receive Date: 20200716
  Receipt Date: 20200716
  Transmission Date: 20201103
  Serious: Yes (Hospitalization, Disabling, Other)
  Sender: FDA-Public Use
  Company Number: EG-NOVOPROD-739857

PATIENT
  Age: 696 Month
  Sex: Male
  Weight: 130 kg

DRUGS (4)
  1. MIXTARD 30 HM PENFILL [Suspect]
     Active Substance: INSULIN HUMAN
     Dosage: 90 IU, QD (60?0?30) AFTER SURGERY
     Route: 058
  2. MIXTARD 30 HM PENFILL [Suspect]
     Active Substance: INSULIN HUMAN
     Indication: DIABETES MELLITUS
     Dosage: 80 IU, QD (50?0?30)
     Route: 058
  3. GAPTIN [Concomitant]
     Indication: ANALGESIC THERAPY
     Dosage: 1 TAB.\DINNER,  STARTED 4 OR 5 YEARS AGO
     Route: 048
  4. THIOTACID [Concomitant]
     Active Substance: .ALPHA.-LIPOIC ACID
     Indication: NEUROPATHY PERIPHERAL
     Dosage: 2 TAB.\DAY , 5 YEARS AGO
     Route: 048

REACTIONS (3)
  - Diabetes mellitus inadequate control [Not Recovered/Not Resolved]
  - Limb traumatic amputation [Recovered/Resolved with Sequelae]
  - Diabetic gangrene [Recovered/Resolved with Sequelae]

NARRATIVE: CASE EVENT DATE: 2018
